FAERS Safety Report 9222227 (Version 2)
Quarter: 2013Q3

REPORT INFORMATION
  Report Type: Spontaneous
  Country: BR (occurrence: BR)
  Receive Date: 20130410
  Receipt Date: 20130813
  Transmission Date: 20140515
  Serious: Yes (Other)
  Sender: FDA-Public Use
  Company Number: PHHY2013BR034444

PATIENT
  Age: 31 Year
  Sex: Male

DRUGS (3)
  1. RITALINA [Suspect]
     Dosage: 10 MG, UNK
     Route: 048
  2. RITALINA [Suspect]
     Dosage: 8 DF, O TABLETS DAILY
     Route: 048
  3. RITALIN LA [Suspect]
     Indication: NARCOLEPSY
     Dosage: 40 MG, UNK

REACTIONS (6)
  - Depression [Not Recovered/Not Resolved]
  - Weight decreased [Not Recovered/Not Resolved]
  - Somnolence [Not Recovered/Not Resolved]
  - Apathy [Not Recovered/Not Resolved]
  - Anxiety [Recovered/Resolved]
  - Drug ineffective [Unknown]
